FAERS Safety Report 8539466-4 (Version None)
Quarter: 2012Q3

REPORT INFORMATION
  Report Type: 
  Country: None (occurrence: None)
  Receive Date: 20120726
  Receipt Date: 20120718
  Transmission Date: 20120928
  Serious: Yes (Other)
  Sender: FDA-Public Use
  Company Number: FR-JNJFOC-20120710635

PATIENT
  Age: 58 Year
  Sex: Female

DRUGS (2)
  1. REMICADE [Suspect]
     Indication: CROHN'S DISEASE
     Route: 042
     Dates: start: 20120701
  2. REMICADE [Suspect]
     Dosage: STARTED 3 YEARS AGO
     Route: 042

REACTIONS (3)
  - RESPIRATORY DISTRESS [None]
  - INFUSION RELATED REACTION [None]
  - HYPOAESTHESIA ORAL [None]
